FAERS Safety Report 5098001-6 (Version None)
Quarter: 2006Q3

REPORT INFORMATION
  Report Type: 
  Country: None (occurrence: None)
  Receive Date: 20060905
  Receipt Date: 20060905
  Transmission Date: 20061208
  Serious: Yes (Other)
  Sender: FDA-Public Use
  Company Number: None

PATIENT
  Sex: Female
  Weight: 74.8435 kg

DRUGS (1)
  1. AVANDIA [Suspect]
     Indication: DIABETES MELLITUS
     Dosage: 4 MG 1 X D
     Dates: start: 20060320, end: 20060326

REACTIONS (3)
  - CARDIAC FAILURE CONGESTIVE [None]
  - ERYTHEMA MULTIFORME [None]
  - SKIN DISCOLOURATION [None]
